FAERS Safety Report 4477267-7 (Version None)
Quarter: 2004Q4

REPORT INFORMATION
  Report Type: 
  Country: None (occurrence: None)
  Receive Date: 20041018
  Receipt Date: 20040302
  Transmission Date: 20050328
  Serious: No
  Sender: FDA-Public Use
  Company Number: US-GLAXOSMITHKLINE-A0500869A

PATIENT
  Age: 6 Year
  Sex: Male

DRUGS (2)
  1. CEFTIN [Suspect]
     Indication: OTITIS MEDIA ACUTE
     Dosage: 5ML TWICE PER DAY
     Route: 048
     Dates: start: 20040301, end: 20040301
  2. MOTRIN [Concomitant]

REACTIONS (1)
  - VOMITING [None]
